FAERS Safety Report 11461622 (Version 1)
Quarter: 2015Q3

REPORT INFORMATION
  Report Type: Spontaneous
  Country: US (occurrence: US)
  Receive Date: 20150831
  Receipt Date: 20150831
  Transmission Date: 20151125
  Serious: No
  Sender: FDA-Public Use
  Company Number: US-ELI_LILLY_AND_COMPANY-US201008003780

PATIENT
  Age: 56 Year
  Sex: Male

DRUGS (5)
  1. CYMBALTA [Suspect]
     Active Substance: DULOXETINE HYDROCHLORIDE
     Indication: DEPRESSION
     Dosage: 60 MG, DAILY (1/D)
  2. CYMBALTA [Suspect]
     Active Substance: DULOXETINE HYDROCHLORIDE
     Dosage: 30 MG, UNK
  3. CYMBALTA [Suspect]
     Active Substance: DULOXETINE HYDROCHLORIDE
     Dosage: 30 MG, DAILY (1/D)
  4. WELLBUTRIN [Concomitant]
     Active Substance: BUPROPION HYDROCHLORIDE
  5. CYMBALTA [Suspect]
     Active Substance: DULOXETINE HYDROCHLORIDE
     Dosage: UNK, UNKNOWN

REACTIONS (12)
  - Intentional product misuse [Recovered/Resolved]
  - Constipation [Unknown]
  - Dysphonia [Unknown]
  - Drug effect decreased [Recovered/Resolved]
  - Pain [Unknown]
  - Fatigue [Unknown]
  - Malaise [Unknown]
  - Throat tightness [Unknown]
  - Influenza like illness [Unknown]
  - Anxiety [Recovered/Resolved]
  - Depression [Unknown]
  - Feeling abnormal [Unknown]
